FAERS Safety Report 9383852 (Version 1)
Quarter: 2013Q3

REPORT INFORMATION
  Report Type: Spontaneous
  Country: US (occurrence: US)
  Receive Date: 20130704
  Receipt Date: 20130704
  Transmission Date: 20140515
  Serious: Yes (Hospitalization)
  Sender: FDA-Public Use
  Company Number: US-009507513-1306USA013621

PATIENT
  Sex: Female

DRUGS (3)
  1. DULERA [Suspect]
     Indication: ASTHMA
     Dosage: 100 MCG/5 MCG / TWICE DAILY
     Route: 055
  2. ADVAIR [Concomitant]
  3. WELLBUTRIN [Concomitant]

REACTIONS (2)
  - Palpitations [Unknown]
  - Underdose [Unknown]
